FAERS Safety Report 8565843 (Version 4)
Quarter: 2013Q2

REPORT INFORMATION
  Report Type: Spontaneous
  Country: US (occurrence: US)
  Receive Date: 20120516
  Receipt Date: 20130408
  Transmission Date: 20140414
  Serious: Yes (Hospitalization, Other)
  Sender: FDA-Public Use
  Company Number: US-ASTRAZENECA-2012SE24006

PATIENT
  Age: 51 Year
  Sex: Male
  Weight: 120.7 kg

DRUGS (2)
  1. SYMBICORT [Suspect]
     Indication: CHRONIC OBSTRUCTIVE PULMONARY DISEASE
     Dosage: 160/4.5 MCG 2 PUFFS TWICE A DAY
     Route: 055
  2. PRIMATENE MIST [Concomitant]
     Indication: INHALATION THERAPY

REACTIONS (8)
  - Dyspnoea [Unknown]
  - Sinusitis [Not Recovered/Not Resolved]
  - Chronic obstructive pulmonary disease [Unknown]
  - Malaise [Unknown]
  - Pharyngeal disorder [Unknown]
  - Bronchitis [Unknown]
  - Increased upper airway secretion [Unknown]
  - Drug dose omission [Unknown]
